FAERS Safety Report 5915298-8 (Version None)
Quarter: 2008Q3

REPORT INFORMATION
  Report Type: 
  Country: None (occurrence: None)
  Receive Date: 20080909
  Receipt Date: 20080205
  Transmission Date: 20090109
  Serious: Yes (Death)
  Sender: FDA-Public Use
  Company Number: 163-20785-08010279

PATIENT
  Age: 68 Year
  Sex: Male

DRUGS (3)
  1. THALOMID [Suspect]
     Indication: MULTIPLE MYELOMA
     Dosage: 50 MG, 1 IN I D, ORAL; 150 MG DAILY ORAL
     Route: 048
     Dates: start: 20061101, end: 20061201
  2. THALOMID [Suspect]
     Indication: MULTIPLE MYELOMA
     Dosage: 50 MG, 1 IN I D, ORAL; 150 MG DAILY ORAL
     Route: 048
     Dates: start: 20061205
  3. THALOMID [Suspect]

REACTIONS (1)
  - MULTIPLE MYELOMA [None]
